FAERS Safety Report 4445776-2 (Version None)
Quarter: 2004Q3

REPORT INFORMATION
  Report Type: 
  Country: None (occurrence: None)
  Receive Date: 20040910
  Receipt Date: 20040903
  Transmission Date: 20050211
  Serious: Yes (Other)
  Sender: FDA-Public Use
  Company Number: 200418821GDDC

PATIENT
  Age: 49 Year
  Sex: Female
  Weight: 74 kg

DRUGS (3)
  1. LANTUS [Suspect]
     Indication: DIABETES MELLITUS
     Dosage: DOSE UNIT: UNITS
     Route: 058
     Dates: start: 20030301, end: 20040815
  2. PROCHLORPERAZINE [Concomitant]
     Indication: LABYRINTHITIS
     Route: 048
     Dates: start: 20040322, end: 20040329
  3. HUMALOG [Concomitant]
     Indication: DIABETES MELLITUS
     Dosage: DOSE: 5-20; DOSE UNIT: UNITS
     Route: 058
     Dates: end: 20040515

REACTIONS (5)
  - ARTHRALGIA [None]
  - HYPOGLYCAEMIA [None]
  - MOOD ALTERED [None]
  - SUICIDAL IDEATION [None]
  - TEARFULNESS [None]
